FAERS Safety Report 6789042-9 (Version None)
Quarter: 2010Q2

REPORT INFORMATION
  Report Type: 
  Country: None (occurrence: None)
  Receive Date: 20100623
  Receipt Date: 20080903
  Transmission Date: 20101027
  Serious: No
  Sender: FDA-Public Use
  Company Number: US-PFIZER INC-2008048603

PATIENT
  Sex: Female
  Weight: 54.545 kg

DRUGS (1)
  1. XALATAN [Suspect]
     Indication: GLAUCOMA
     Dates: start: 20060101

REACTIONS (3)
  - CONJUNCTIVITIS ALLERGIC [None]
  - INCORRECT DOSE ADMINISTERED [None]
  - KERATOCONJUNCTIVITIS SICCA [None]
